FAERS Safety Report 23567356 (Version 1)
Quarter: 2024Q1

REPORT INFORMATION
  Report Type: Spontaneous
  Country: US (occurrence: US)
  Receive Date: 20240226
  Receipt Date: 20240226
  Transmission Date: 20240410
  Serious: No
  Sender: FDA-Public Use
  Company Number: US-VERTICAL PHARMACEUTICALS-2023ALO00032

PATIENT
  Age: 49 Year
  Sex: Female
  Weight: 99.773 kg

DRUGS (2)
  1. BALCOLTRA [Suspect]
     Active Substance: ETHINYL ESTRADIOL\LEVONORGESTREL
     Indication: Contraception
     Dosage: 1 TABLET, 1X/DAY (SKIPS PLACEBO PILLS IN EVERY PACK)
     Route: 048
     Dates: start: 202306, end: 2023
  2. BALCOLTRA [Suspect]
     Active Substance: ETHINYL ESTRADIOL\LEVONORGESTREL
     Indication: Menstrual cycle management
     Dosage: 1 TABLET, 1X/DAY (SKIPS PLACEBO PILLS IN EVERY PACK)
     Route: 048
     Dates: start: 2023

REACTIONS (3)
  - Libido decreased [Not Recovered/Not Resolved]
  - Intentional product misuse [Not Recovered/Not Resolved]
  - Vaginal haemorrhage [Unknown]

NARRATIVE: CASE EVENT DATE: 20230601
